FAERS Safety Report 13408324 (Version 1)
Quarter: 2017Q2

REPORT INFORMATION
  Report Type: Spontaneous
  Country: IN (occurrence: US)
  Receive Date: 20170405
  Receipt Date: 20170405
  Transmission Date: 20170830
  Serious: Yes (Life-Threatening, Other)
  Sender: FDA-Public Use
  Company Number: None

PATIENT
  Age: 8 Year
  Sex: Female
  Weight: 56 kg

DRUGS (2)
  1. STREPSILS SOOTHING HONEY + LEMON [Suspect]
     Active Substance: AMYLMETACRESOL\DICHLOROBENZYL ALCOHOL
     Indication: OROPHARYNGEAL PAIN
     Dosage: QUANTITY:2 LOZENGES;?
     Route: 048
     Dates: start: 20170405
  2. STREPSILS SOOTHING HONEY + LEMON [Suspect]
     Active Substance: AMYLMETACRESOL\DICHLOROBENZYL ALCOHOL
     Indication: COUGH
     Dosage: QUANTITY:2 LOZENGES;?
     Route: 048
     Dates: start: 20170405

REACTIONS (5)
  - Pruritus [None]
  - Musculoskeletal stiffness [None]
  - Erythema [None]
  - Skin swelling [None]
  - Scratch [None]

NARRATIVE: CASE EVENT DATE: 20170405
